FAERS Safety Report 8372599-4 (Version None)
Quarter: 2012Q2

REPORT INFORMATION
  Report Type: 
  Country: None (occurrence: None)
  Receive Date: 20120521
  Receipt Date: 20120516
  Transmission Date: 20120825
  Serious: Yes (Other)
  Sender: FDA-Public Use
  Company Number: PHHY2012AR042423

PATIENT
  Sex: Female

DRUGS (1)
  1. DIOVAN [Suspect]
     Indication: HYPERTENSION
     Dosage: 1 DF (160/12,5 MG), DAILY
     Dates: end: 20120501

REACTIONS (2)
  - PARKINSON'S DISEASE [None]
  - MEMORY IMPAIRMENT [None]
